FAERS Safety Report 7986568-7 (Version None)
Quarter: 2011Q4

REPORT INFORMATION
  Report Type: 
  Country: None (occurrence: None)
  Receive Date: 20111216
  Receipt Date: 20110725
  Transmission Date: 20120403
  Serious: Yes (Hospitalization)
  Sender: FDA-Public Use
  Company Number: US-BRISTOL-MYERS SQUIBB COMPANY-15921059

PATIENT
  Age: 40 Year
  Sex: Male
  Weight: 99 kg

DRUGS (3)
  1. ABILIFY [Suspect]
     Dosage: REDUCED TO 2.5MG
  2. LYSINE [Suspect]
  3. CYMBALTA [Suspect]
     Dosage: DECREASED TO 30MG

REACTIONS (11)
  - DIZZINESS [None]
  - INSOMNIA [None]
  - HEADACHE [None]
  - DRY MOUTH [None]
  - SALIVARY HYPERSECRETION [None]
  - OEDEMA PERIPHERAL [None]
  - CONFUSIONAL STATE [None]
  - ADVERSE EVENT [None]
  - FATIGUE [None]
  - ARTHRALGIA [None]
  - AGITATION [None]
